FAERS Safety Report 21647992 (Version 1)
Quarter: 2022Q4

REPORT INFORMATION
  Report Type: Report from Study
  Country: CA (occurrence: CA)
  Receive Date: 20221128
  Receipt Date: 20221128
  Transmission Date: 20230112
  Serious: Yes (Other)
  Sender: FDA-Public Use
  Company Number: CA-ABBVIE-4215204

PATIENT
  Sex: Male

DRUGS (1)
  1. RINVOQ [Suspect]
     Active Substance: UPADACITINIB
     Indication: Rheumatoid arthritis
     Route: 048
     Dates: start: 20220804, end: 20221022

REACTIONS (6)
  - Knee operation [Unknown]
  - Postoperative wound infection [Unknown]
  - Therapeutic product effect delayed [Unknown]
  - Pain in extremity [Unknown]
  - Back pain [Unknown]
  - Spinal stenosis [Unknown]

NARRATIVE: CASE EVENT DATE: 20220101
